FAERS Safety Report 16428794 (Version 1)
Quarter: 2019Q2

REPORT INFORMATION
  Report Type: Spontaneous
  Country: US (occurrence: US)
  Receive Date: 20190613
  Receipt Date: 20190613
  Transmission Date: 20190711
  Serious: Yes (Death, Life-Threatening, Hospitalization, Other)
  Sender: FDA-Public Use
  Company Number: US-IBSA PHARMA-TIR-2019-0556

PATIENT
  Age: 41 Year
  Sex: Male

DRUGS (1)
  1. LEVOTHYROXINE. [Suspect]
     Active Substance: LEVOTHYROXINE
     Indication: HYPOTHYROIDISM
     Dosage: 50MCG DAILY
     Route: 048

REACTIONS (6)
  - Myxoedema coma [Fatal]
  - Sepsis [Fatal]
  - Cardiogenic shock [Fatal]
  - Peripheral ischaemia [Fatal]
  - Aortic thrombosis [Fatal]
  - Acute kidney injury [Fatal]
